FAERS Safety Report 4673797-3 (Version None)
Quarter: 2005Q2

REPORT INFORMATION
  Report Type: 
  Country: None (occurrence: None)
  Receive Date: 20050524
  Receipt Date: 20050511
  Transmission Date: 20051028
  Serious: Yes (Hospitalization)
  Sender: FDA-Public Use
  Company Number: HQWYE689912MAY05

PATIENT
  Age: 56 Year
  Sex: Female

DRUGS (6)
  1. RAPAMUNE [Suspect]
     Indication: PROPHYLAXIS AGAINST TRANSPLANT REJECTION
     Dosage: 4 MG 1X PER 1 DAY, ORAL
     Route: 048
     Dates: start: 20050419
  2. PREDNISONE [Concomitant]
  3. CYCLOSPORINE [Concomitant]
  4. FUROSEMIDE [Concomitant]
  5. BACTRIM [Concomitant]
  6. VITAMINS NOS (VITAMINS NOS) [Concomitant]

REACTIONS (1)
  - KIDNEY TRANSPLANT REJECTION [None]
